FAERS Safety Report 12715770 (Version 2)
Quarter: 2016Q3

REPORT INFORMATION
  Report Type: Spontaneous
  Country: US (occurrence: US)
  Receive Date: 20160906
  Receipt Date: 20160908
  Transmission Date: 20161109
  Serious: No
  Sender: FDA-Public Use
  Company Number: US-PFIZER INC-2016413329

PATIENT
  Age: 6 Year
  Sex: Male
  Weight: 15 kg

DRUGS (2)
  1. GENOTROPIN [Suspect]
     Active Substance: SOMATROPIN
     Indication: GROWTH HORMONE DEFICIENCY
     Dosage: 0.7 MG, UNK
     Route: 058
     Dates: start: 201512
  2. GENOTROPIN [Suspect]
     Active Substance: SOMATROPIN
     Dosage: 0.8 MG, 6X/WEEK
     Route: 058
     Dates: start: 201608

REACTIONS (3)
  - Abnormal behaviour [Unknown]
  - Personality change [Unknown]
  - Headache [Unknown]

NARRATIVE: CASE EVENT DATE: 20160810
